FAERS Safety Report 23500009 (Version 1)
Quarter: 2024Q1

REPORT INFORMATION
  Report Type: Spontaneous
  Country: CN (occurrence: CN)
  Receive Date: 20240208
  Receipt Date: 20240208
  Transmission Date: 20240410
  Serious: Yes (Hospitalization, Other)
  Sender: FDA-Public Use
  Company Number: CN-ORGANON-O2402CHN000226

PATIENT
  Age: 33 Year
  Sex: Female
  Weight: 54.6 kg

DRUGS (8)
  1. FOLLITROPIN BETA [Suspect]
     Active Substance: FOLLITROPIN BETA
     Indication: Superovulation
     Dosage: SUBCUTANEOUS INJECTION, 120IU, QD
     Route: 058
     Dates: start: 20231220, end: 20231224
  2. FOLLITROPIN BETA [Suspect]
     Active Substance: FOLLITROPIN BETA
     Dosage: SUBCUTANEOUS INJECTION, 125IU, QD
     Route: 058
     Dates: start: 20231225, end: 20231228
  3. MENOTROPINS [Suspect]
     Active Substance: MENOTROPINS
     Indication: Superovulation
     Dosage: INTRAMUSCULAR INJECTION, 75IU, QD
     Route: 030
     Dates: start: 20231220, end: 20231228
  4. GONAL-F [Suspect]
     Active Substance: FOLLITROPIN
     Indication: Superovulation
     Dosage: SUBCUTANEOUS INJECTION, 75IU,QD
     Route: 058
     Dates: start: 20231229, end: 20231229
  5. LUVERIS [Suspect]
     Active Substance: LUTROPIN ALFA
     Indication: Superovulation
     Dosage: SUBCUTANEOUS INJECTION, 75IU, QD
     Route: 058
     Dates: start: 20231229, end: 20231231
  6. OVIDREL [Suspect]
     Active Substance: CHORIOGONADOTROPIN ALFA
     Indication: Superovulation
     Dosage: SUBCUTANEOUS INJECTION, 250UG, QD
     Route: 058
     Dates: start: 20231231, end: 20231231
  7. SODIUM CHLORIDE [Concomitant]
     Active Substance: SODIUM CHLORIDE
     Indication: Vehicle solution use
     Dosage: INTRAMUSCULAR INJECTION, 2ML, QD
     Route: 030
     Dates: start: 20231220, end: 20231228
  8. STERILE WATER [Concomitant]
     Active Substance: WATER
     Indication: Vehicle solution use
     Dosage: SUBCUTANEOUS INJECTION, 1ML, QD
     Route: 058
     Dates: start: 20231229, end: 20231229

REACTIONS (5)
  - Ovarian hyperstimulation syndrome [Recovering/Resolving]
  - Abdominal distension [Recovering/Resolving]
  - Abdominal pain [Recovering/Resolving]
  - Chest discomfort [Recovering/Resolving]
  - Hypovolaemia [Recovering/Resolving]

NARRATIVE: CASE EVENT DATE: 20240123
